FAERS Safety Report 16197380 (Version 1)
Quarter: 2019Q2

REPORT INFORMATION
  Report Type: Spontaneous
  Country: US (occurrence: US)
  Receive Date: 20190412
  Receipt Date: 20190412
  Transmission Date: 20190711
  Serious: Yes (Life-Threatening, Hospitalization)
  Sender: FDA-Public Use
  Company Number: None

PATIENT
  Age: 14 Year
  Sex: Female
  Weight: 39.6 kg

DRUGS (5)
  1. VERSED [Suspect]
     Active Substance: MIDAZOLAM HYDROCHLORIDE
     Indication: PRODUCT USED FOR UNKNOWN INDICATION
     Dates: start: 20190304, end: 20190304
  2. DECADRON [Suspect]
     Active Substance: DEXAMETHASONE
  3. FENTANYL. [Suspect]
     Active Substance: FENTANYL
  4. PROPOFOL. [Suspect]
     Active Substance: PROPOFOL
  5. KETAMINE [Suspect]
     Active Substance: KETAMINE

REACTIONS (2)
  - Erythema [None]
  - Stridor [None]

NARRATIVE: CASE EVENT DATE: 20190304
